FAERS Safety Report 6206687-5 (Version None)
Quarter: 2009Q2

REPORT INFORMATION
  Report Type: 
  Country: None (occurrence: None)
  Receive Date: 20090528
  Receipt Date: 20090520
  Transmission Date: 20091009
  Serious: Yes (Other)
  Sender: FDA-Public Use
  Company Number: CA-ASTRAZENECA-2009UW12981

PATIENT
  Sex: Female

DRUGS (5)
  1. ARIMIDEX [Suspect]
     Indication: BREAST CANCER
     Dosage: ONE TABLET
     Route: 048
     Dates: end: 20090519
  2. CALCIUM [Concomitant]
  3. VITAMIN D [Concomitant]
  4. MULTI-VITAMIN [Concomitant]
  5. IRON [Concomitant]

REACTIONS (7)
  - BONE DENSITY DECREASED [None]
  - DRY MOUTH [None]
  - INSOMNIA [None]
  - PAIN [None]
  - PERIODONTAL DISEASE [None]
  - TENDONITIS [None]
  - TRIGGER FINGER [None]
